FAERS Safety Report 13547269 (Version 1)
Quarter: 2017Q2

REPORT INFORMATION
  Report Type: Spontaneous
  Country: CA (occurrence: CA)
  Receive Date: 20170515
  Receipt Date: 20170515
  Transmission Date: 20170830
  Serious: Yes (Hospitalization)
  Sender: FDA-Public Use
  Company Number: CA-ACTELION-A-US2017-153661

PATIENT
  Age: 76 Year
  Sex: Female
  Weight: 52.15 kg

DRUGS (7)
  1. XARELTO [Concomitant]
     Active Substance: RIVAROXABAN
  2. AMIODARONE [Concomitant]
     Active Substance: AMIODARONE
  3. SYNTHROID [Concomitant]
     Active Substance: LEVOTHYROXINE SODIUM
  4. CARIPUL [Suspect]
     Active Substance: EPOPROSTENOL
     Indication: PULMONARY ARTERIAL HYPERTENSION
     Dosage: 3000 NG/ML, UNK
     Route: 042
     Dates: start: 20160318
  5. VASOTEC [Concomitant]
     Active Substance: ENALAPRIL MALEATE
  6. SILDENAFIL. [Concomitant]
     Active Substance: SILDENAFIL
  7. ZOPICLONE [Concomitant]
     Active Substance: ZOPICLONE

REACTIONS (2)
  - Compression fracture [Not Recovered/Not Resolved]
  - Oxygen therapy [Not Recovered/Not Resolved]
